FAERS Safety Report 6745806-9 (Version None)
Quarter: 2010Q2

REPORT INFORMATION
  Report Type: 
  Country: None (occurrence: None)
  Receive Date: 20100528
  Receipt Date: 20100520
  Transmission Date: 20101027
  Serious: Yes (Hospitalization)
  Sender: FDA-Public Use
  Company Number: IT-NOVOPROD-304840

PATIENT
  Sex: Female

DRUGS (7)
  1. ACTRAPID [Suspect]
     Indication: TYPE 2 DIABETES MELLITUS
     Dosage: 60 IU, QD
     Route: 058
     Dates: start: 20080101, end: 20100218
  2. CARVEDILOL [Concomitant]
     Indication: ATRIAL FIBRILLATION
     Dosage: 12.5 MG, QD
     Dates: start: 20080101, end: 20100218
  3. IRBESARTAN [Concomitant]
     Indication: HYPERTENSION
     Dosage: 300 MG, QD
     Dates: start: 20080101, end: 20100218
  4. MINITRAN                           /00003201/ [Concomitant]
     Indication: MYOCARDIAL ISCHAEMIA
     Dosage: 5 MG, QD
     Route: 062
     Dates: start: 20080101, end: 20100218
  5. LASITONE [Concomitant]
     Indication: HYPERTENSION
     Dosage: 25+37 MG
     Dates: start: 20080101, end: 20100218
  6. LASIX [Concomitant]
     Indication: HYPERTENSION
     Dosage: 25 MG, QD
     Route: 048
     Dates: start: 20080101, end: 20100218
  7. ZYLORIC                            /00003301/ [Concomitant]
     Indication: HYPERURICAEMIA
     Dosage: 150 MG, QD
     Route: 048
     Dates: start: 20080101, end: 20100218

REACTIONS (4)
  - FALL [None]
  - HEAD INJURY [None]
  - HYPOGLYCAEMIA [None]
  - MESOTHELIOMA [None]
